FAERS Safety Report 8122892-5 (Version None)
Quarter: 2012Q1

REPORT INFORMATION
  Report Type: 
  Country: None (occurrence: None)
  Receive Date: 20120208
  Receipt Date: 20120130
  Transmission Date: 20120608
  Serious: Yes (Hospitalization, Other)
  Sender: FDA-Public Use
  Company Number: DE-PFIZER INC-2012011973

PATIENT
  Age: 38 Year
  Sex: Female
  Weight: 54 kg

DRUGS (3)
  1. PANTOPRAZOLE [Suspect]
     Indication: HELICOBACTER INFECTION
     Dosage: UNK
     Dates: start: 20120104, end: 20120110
  2. CLARITHROMYCIN [Suspect]
     Indication: HELICOBACTER INFECTION
     Dosage: UNK
     Dates: start: 20120104, end: 20120110
  3. AMOXICILLIN [Suspect]
     Indication: HELICOBACTER INFECTION
     Dosage: UNK
     Dates: start: 20120104, end: 20120110

REACTIONS (4)
  - ERUCTATION [None]
  - ABDOMINAL DISCOMFORT [None]
  - DYSGEUSIA [None]
  - NAUSEA [None]
